FAERS Safety Report 14658202 (Version 2)
Quarter: 2018Q2

REPORT INFORMATION
  Report Type: Spontaneous
  Country: US (occurrence: US)
  Receive Date: 20180320
  Receipt Date: 20180605
  Transmission Date: 20180711
  Serious: No
  Sender: FDA-Public Use
  Company Number: US-009507513-1803USA006406

PATIENT
  Age: 35 Year
  Sex: Female

DRUGS (1)
  1. GANIRELIX ACETATE INJECTION [Suspect]
     Active Substance: GANIRELIX ACETATE
     Indication: INFERTILITY FEMALE
     Dosage: 250 MICROGRAM, QD
     Route: 058
     Dates: start: 20180303

REACTIONS (6)
  - Irritability [Unknown]
  - Mood altered [Unknown]
  - Mood swings [Unknown]
  - Dizziness [Unknown]
  - Frustration tolerance decreased [Unknown]
  - Pain [Unknown]

NARRATIVE: CASE EVENT DATE: 201803
